FAERS Safety Report 7463119-7 (Version None)
Quarter: 2011Q2

REPORT INFORMATION
  Report Type: 
  Country: None (occurrence: None)
  Receive Date: 20110506
  Receipt Date: 20110503
  Transmission Date: 20111010
  Serious: Yes (Hospitalization, Other)
  Sender: FDA-Public Use
  Company Number: US-AMGEN-USASP2011021400

PATIENT
  Age: 91 Year
  Sex: Female
  Weight: 70.3 kg

DRUGS (17)
  1. ARANESP [Suspect]
     Indication: ANAEMIA
     Dosage: 500 A?G, Q3WK
     Route: 042
     Dates: start: 20110330, end: 20110330
  2. CENTRUM SILVER                     /01292501/ [Concomitant]
     Dosage: UNK UNK, QD
  3. METOPROLOL SUCCINATE [Concomitant]
     Dosage: 50 MG, BID
  4. FEOSOL [Concomitant]
     Dosage: 325 MG, QD
  5. PRILOSEC [Concomitant]
     Dosage: 20 MG, QD
  6. APRESOLINE [Concomitant]
     Dosage: 25 MG, TID
  7. PERCOCET [Concomitant]
     Dosage: UNK UNK, PRN
  8. AGGRENOX [Concomitant]
     Dosage: UNK UNK, BID
  9. LASIX [Concomitant]
     Dosage: 20 MG, QD
  10. ATIVAN [Concomitant]
     Dosage: 20 MG, QD
  11. VECTIBIX [Suspect]
     Indication: COLON CANCER METASTATIC
     Dosage: 6 MG/KG, Q2WK
     Route: 042
     Dates: start: 20110217
  12. BENADRYL [Concomitant]
     Indication: COLON CANCER METASTATIC
     Dosage: 25 MG, Q2WK
     Dates: start: 20110217
  13. MEVACOR [Concomitant]
     Dosage: 20 MG, QD
  14. ACETAMINOPHEN [Concomitant]
  15. CITRACAL-D [Concomitant]
  16. LOVASTATIN [Concomitant]
  17. NITROGLYCERIN [Concomitant]
     Dosage: UNK UNK, PRN

REACTIONS (9)
  - DYSPNOEA [None]
  - HAEMOPTYSIS [None]
  - DYSPHONIA [None]
  - OEDEMA PERIPHERAL [None]
  - EPISTAXIS [None]
  - CAROTID ARTERY DISEASE [None]
  - ANAEMIA [None]
  - TRANSIENT ISCHAEMIC ATTACK [None]
  - HYPOMAGNESAEMIA [None]
